FAERS Safety Report 8585924-6 (Version None)
Quarter: 2012Q3

REPORT INFORMATION
  Report Type: 
  Country: None (occurrence: None)
  Receive Date: 20120810
  Receipt Date: 20120806
  Transmission Date: 20120928
  Serious: Yes (Disabling, Other)
  Sender: FDA-Public Use
  Company Number: GB-PFIZER INC-2012146993

PATIENT
  Age: 57 Year
  Sex: Female
  Weight: 72 kg

DRUGS (3)
  1. CITALOPRAM [Concomitant]
     Indication: DEPRESSION
     Dosage: 20 MG, UNK
     Route: 048
     Dates: start: 20100601
  2. VARENICLINE [Suspect]
     Indication: SMOKING CESSATION THERAPY
     Dosage: 1 MG, 2X/DAY
     Route: 048
     Dates: start: 20120522, end: 20120607
  3. ACETAMINOPHEN AND CODEINE PHOSPHATE [Concomitant]
     Indication: ANALGESIC THERAPY
     Dosage: 30/500, UNK
     Route: 048
     Dates: start: 20100601

REACTIONS (19)
  - PAIN [None]
  - PAIN OF SKIN [None]
  - ONYCHOLYSIS [None]
  - DEPRESSION [None]
  - CHEST PAIN [None]
  - PRURITUS [None]
  - RASH GENERALISED [None]
  - SKIN EXFOLIATION [None]
  - BLISTER [None]
  - PANIC ATTACK [None]
  - ASTHENIA [None]
  - DEPRESSED MOOD [None]
  - GAIT DISTURBANCE [None]
  - MALAISE [None]
  - SKIN DISCOLOURATION [None]
  - TREMOR [None]
  - RASH MACULAR [None]
  - DYSPNOEA [None]
  - ABNORMAL DREAMS [None]
